FAERS Safety Report 14660902 (Version 4)
Quarter: 2020Q3

REPORT INFORMATION
  Report Type: Report from Study
  Country: GB (occurrence: GB)
  Receive Date: 20180320
  Receipt Date: 20180402
  Transmission Date: 20201105
  Serious: Yes (Hospitalization)
  Sender: FDA-Public Use
  Company Number: GB-CELGENEUS-GBR-20180304267

PATIENT
  Age: 13 Year
  Sex: Male
  Weight: 34.6 kg

DRUGS (5)
  1. POTASSIUM CITRATE. [Concomitant]
     Active Substance: POTASSIUM CITRATE
     Indication: SUPPLEMENTATION THERAPY
     Dosage: 99 MILLIGRAM
     Route: 048
  2. COENZYME Q10 [Concomitant]
     Active Substance: DIETARY SUPPLEMENT\UBIDECARENONE
     Indication: ANTIOXIDANT THERAPY
     Dosage: 200 MILLIGRAM
     Route: 048
  3. DEXAMETHASONE. [Concomitant]
     Active Substance: DEXAMETHASONE
     Indication: ANTIINFLAMMATORY THERAPY
     Dosage: 8 MILLIGRAM
     Route: 048
     Dates: start: 20180311
  4. CC?4047 [Suspect]
     Active Substance: POMALIDOMIDE
     Indication: MEDULLOBLASTOMA RECURRENT
     Dosage: 3 MILLIGRAM
     Route: 048
     Dates: start: 20180215, end: 20180307
  5. MAGNESIUM CITRATE. [Concomitant]
     Active Substance: MAGNESIUM CITRATE
     Indication: SUPPLEMENTATION THERAPY
     Dosage: 50 MILLIGRAM
     Route: 048

REACTIONS (1)
  - Transient ischaemic attack [Recovered/Resolved]

NARRATIVE: CASE EVENT DATE: 20180311
